FAERS Safety Report 24193719 (Version 4)
Quarter: 2025Q3

REPORT INFORMATION
  Report Type: Spontaneous
  Country: JP (occurrence: JP)
  Receive Date: 20240809
  Receipt Date: 20250809
  Transmission Date: 20251020
  Serious: Yes (Other)
  Sender: ALEXION PHARMACEUTICALS
  Company Number: 2023A293711

PATIENT
  Age: 81 Year
  Sex: Male
  Weight: 64 kg

DRUGS (2)
  1. IMFINZI [Suspect]
     Active Substance: DURVALUMAB
     Indication: Hepatocellular carcinoma
  2. IMJUDO [Suspect]
     Active Substance: TREMELIMUMAB\TREMELIMUMAB-ACTL
     Indication: Hepatocellular carcinoma
     Dates: start: 20230725, end: 20230725

REACTIONS (10)
  - Intra-abdominal haemorrhage [Unknown]
  - Malaise [Recovered/Resolved]
  - Abdominal pain [Unknown]
  - Liver carcinoma ruptured [Unknown]
  - Tumour marker increased [Recovering/Resolving]
  - Movement disorder [Unknown]
  - Glycosylated haemoglobin increased [Unknown]
  - Hepatic enzyme increased [Unknown]
  - Inflammation [Unknown]
  - Haemorrhagic ascites [Unknown]
